FAERS Safety Report 20919957 (Version 1)
Quarter: 2022Q2

REPORT INFORMATION
  Report Type: Spontaneous
  Country: US (occurrence: US)
  Receive Date: 20220606
  Receipt Date: 20220606
  Transmission Date: 20220721
  Serious: Yes (Other)
  Sender: FDA-Public Use
  Company Number: US-AMGEN-USASP2022095310

PATIENT
  Sex: Female

DRUGS (1)
  1. OTEZLA [Suspect]
     Active Substance: APREMILAST
     Indication: Psoriatic arthropathy
     Dosage: 30 MILLIGRAM, BID
     Route: 065
     Dates: start: 2020

REACTIONS (5)
  - Sialoadenitis [Unknown]
  - Influenza like illness [Unknown]
  - Hypergammaglobulinaemia [Unknown]
  - Monoclonal immunoglobulin present [Unknown]
  - Blood immunoglobulin A abnormal [Unknown]
